FAERS Safety Report 24730052 (Version 2)
Quarter: 2025Q1

REPORT INFORMATION
  Report Type: Spontaneous
  Country: HU (occurrence: HU)
  Receive Date: 20241213
  Receipt Date: 20250107
  Transmission Date: 20250409
  Serious: Yes (Death, Other)
  Sender: DECIPHERA PHARMACEUTICALS
  Company Number: HU-DECIPHERA PHARMACEUTICALS LLC-2024HU001011

PATIENT
  Age: 74 Year
  Sex: Female

DRUGS (1)
  1. QINLOCK [Suspect]
     Active Substance: RIPRETINIB
     Indication: Gastrointestinal stromal tumour
     Dates: start: 20200508, end: 202005

REACTIONS (2)
  - Death [Fatal]
  - Performance status decreased [Not Recovered/Not Resolved]

NARRATIVE: CASE EVENT DATE: 20200501
